FAERS Safety Report 9621572 (Version 1)
Quarter: 2013Q4

REPORT INFORMATION
  Report Type: Spontaneous
  Country: US (occurrence: None)
  Receive Date: 20131011
  Receipt Date: 20131011
  Transmission Date: 20140711
  Serious: No
  Sender: FDA-Public Use
  Company Number: None

PATIENT
  Age: 59 Year
  Sex: Female

DRUGS (2)
  1. VELCADE [Suspect]
     Indication: PLASMA CELL MYELOMA
     Dates: start: 201204
  2. INTERFERON [Suspect]
     Indication: HEPATITIS C
     Dates: start: 201210

REACTIONS (2)
  - Fatigue [None]
  - Alopecia [None]
